FAERS Safety Report 17614815 (Version 1)
Quarter: 2020Q2

REPORT INFORMATION
  Report Type: Spontaneous
  Country: GB (occurrence: GB)
  Receive Date: 20200402
  Receipt Date: 20200402
  Transmission Date: 20200713
  Serious: Yes (Other)
  Sender: FDA-Public Use
  Company Number: GB-TEVA-2020-GB-1215686

PATIENT
  Age: 62 Year
  Sex: Female
  Weight: 68 kg

DRUGS (10)
  1. PARACETAMOL [Concomitant]
     Active Substance: ACETAMINOPHEN
     Dosage: TAKE 1 OR 2 4 TIMES/DAY
     Dates: start: 20191206
  2. PROCTOSEDYL [Concomitant]
     Active Substance: DIBUCAINE HYDROCHLORIDE\HYDROCORTISONE
     Dosage: INSERT,  1 DF
     Dates: start: 20191206
  3. BUSCOPAN [Concomitant]
     Active Substance: BUTYLSCOPOLAMINE BROMIDE
     Dosage: 8 DF
     Dates: start: 20191206
  4. IBUPROFEN. [Concomitant]
     Active Substance: IBUPROFEN
     Dosage: 3 DF
     Dates: start: 20191206
  5. CITALOPRAM [Concomitant]
     Active Substance: CITALOPRAM HYDROBROMIDE
     Dosage: 2 DF
     Dates: start: 20191206
  6. NITROFURANTOIN. [Concomitant]
     Active Substance: NITROFURANTOIN
     Dosage: WOMEN, 2 DF
     Dates: start: 20200227, end: 20200301
  7. HYLO-FORTE [Concomitant]
     Active Substance: HYALURONATE SODIUM
     Dosage: USE AS DIRECTED, 16 GTT
     Dates: start: 20191206
  8. NAPROXEN. [Suspect]
     Active Substance: NAPROXEN
     Dosage: 1000 MG
     Route: 065
     Dates: start: 20200305
  9. GLYCEROL [Concomitant]
     Active Substance: GLYCERIN
     Dosage: INSERT ONE, 1 DF
     Dates: start: 20200211, end: 20200218
  10. OMEPRAZOLE. [Concomitant]
     Active Substance: OMEPRAZOLE
     Dosage: 1 DF
     Dates: start: 20191206

REACTIONS (4)
  - Palpitations [Recovered/Resolved]
  - Headache [Recovered/Resolved]
  - Nausea [Unknown]
  - Wheezing [Unknown]

NARRATIVE: CASE EVENT DATE: 20200305
